FAERS Safety Report 4912977-6 (Version None)
Quarter: 2006Q1

REPORT INFORMATION
  Report Type: 
  Country: None (occurrence: None)
  Receive Date: 20060210
  Receipt Date: 20060130
  Transmission Date: 20060701
  Serious: Yes (Other)
  Sender: FDA-Public Use
  Company Number: FPI-06-008

PATIENT
  Age: 42 Year
  Sex: Female

DRUGS (2)
  1. REPRONEX [Suspect]
     Indication: INFERTILITY
  2. CLOMIPHENE CITRATE [Concomitant]

REACTIONS (4)
  - ADNEXA UTERI MASS [None]
  - EPITHELIOID SARCOMA [None]
  - LEIOMYOSARCOMA [None]
  - OVARIAN NEOPLASM [None]
